FAERS Safety Report 21245924 (Version 2)
Quarter: 2022Q3

REPORT INFORMATION
  Report Type: Report from Study
  Country: AU (occurrence: AU)
  Receive Date: 20220824
  Receipt Date: 20220916
  Transmission Date: 20221027
  Serious: Yes (Hospitalization, Other)
  Sender: FDA-Public Use
  Company Number: AU-BRISTOL-MYERS SQUIBB COMPANY-2022-092216

PATIENT
  Age: 69 Year
  Sex: Female

DRUGS (2)
  1. NIVOLUMAB [Suspect]
     Active Substance: NIVOLUMAB
     Indication: Neoplasm malignant
     Dosage: 3 MG/KG
     Route: 065
     Dates: end: 20220804
  2. IPILIMUMAB [Suspect]
     Active Substance: IPILIMUMAB
     Indication: Neoplasm malignant
     Dosage: 1 MG/KG
     Route: 065
     Dates: end: 20220804

REACTIONS (4)
  - Colitis [Not Recovered/Not Resolved]
  - Delirium [Recovered/Resolved]
  - Pancytopenia [Unknown]
  - Urosepsis [Unknown]

NARRATIVE: CASE EVENT DATE: 20220809
